FAERS Safety Report 6010214-5 (Version None)
Quarter: 2008Q4

REPORT INFORMATION
  Report Type: 
  Country: None (occurrence: None)
  Receive Date: 20081218
  Receipt Date: 20071130
  Transmission Date: 20090506
  Serious: No
  Sender: FDA-Public Use
  Company Number: A0696808A

PATIENT
  Age: 56 Year
  Sex: Female

DRUGS (2)
  1. FLONASE [Suspect]
     Route: 045
  2. SIMVASTATIN [Concomitant]

REACTIONS (7)
  - ARTHRALGIA [None]
  - CHILLS [None]
  - INFLUENZA LIKE ILLNESS [None]
  - NASAL ULCER [None]
  - NECK PAIN [None]
  - PAIN IN EXTREMITY [None]
  - PYREXIA [None]
